FAERS Safety Report 15083859 (Version 1)
Quarter: 2018Q2

REPORT INFORMATION
  Report Type: Spontaneous
  Country: US (occurrence: US)
  Receive Date: 20180608
  Receipt Date: 20180608
  Transmission Date: 20180711
  Serious: No
  Sender: FDA-Public Use
  Company Number: None

PATIENT
  Age: 31 Year
  Sex: Female

DRUGS (1)
  1. COPAXONE [Suspect]
     Active Substance: GLATIRAMER ACETATE
     Route: 058
     Dates: start: 20170401, end: 20180608

REACTIONS (3)
  - Balance disorder [None]
  - Drug dose omission [None]
  - Dysarthria [None]

NARRATIVE: CASE EVENT DATE: 20180530
